FAERS Safety Report 17791629 (Version 2)
Quarter: 2020Q2

REPORT INFORMATION
  Report Type: Spontaneous
  Country: ES (occurrence: ES)
  Receive Date: 20200515
  Receipt Date: 20200522
  Transmission Date: 20200714
  Serious: Yes (Death)
  Sender: FDA-Public Use
  Company Number: ES-ACCORD-181888

PATIENT
  Age: 84 Year
  Sex: Male

DRUGS (3)
  1. HYDROXYCHLOROQUINE [Suspect]
     Active Substance: HYDROXYCHLOROQUINE
     Indication: CORONAVIRUS INFECTION
     Dosage: LOADING DOSE OF 400 MG EVERY 12 HOURS FOLLOWED BY 200 MG EVERY 12 HOURS
     Route: 048
     Dates: start: 20200412, end: 20200414
  2. AZITHROMYCIN ANHYDROUS. [Concomitant]
     Active Substance: AZITHROMYCIN ANHYDROUS
     Indication: CORONAVIRUS INFECTION
     Route: 048
     Dates: start: 20200412, end: 20200414
  3. HYDROXYCHLOROQUINE [Suspect]
     Active Substance: HYDROXYCHLOROQUINE
     Indication: CORONAVIRUS INFECTION
     Dosage: 400 MG LOADING DOSE FOLLOWED BY 200 MG / DAY
     Route: 048
     Dates: start: 20200412, end: 20200414

REACTIONS (1)
  - Completed suicide [Fatal]

NARRATIVE: CASE EVENT DATE: 20200414
